FAERS Safety Report 17752523 (Version 2)
Quarter: 2020Q2

REPORT INFORMATION
  Report Type: Spontaneous
  Country: PH (occurrence: PH)
  Receive Date: 20200506
  Receipt Date: 20200511
  Transmission Date: 20200714
  Serious: Yes (Death, Other)
  Sender: FDA-Public Use
  Company Number: PH-PFIZER INC-2020180286

PATIENT
  Age: 64 Year
  Sex: Male

DRUGS (2)
  1. OLMESARTAN MEDOXOMIL. [Suspect]
     Active Substance: OLMESARTAN MEDOXOMIL
     Dosage: 20 MG
  2. LIPITOR [Suspect]
     Active Substance: ATORVASTATIN CALCIUM
     Dosage: 20 MG

REACTIONS (4)
  - Sepsis [Unknown]
  - COVID-19 [Fatal]
  - Acute respiratory failure [Fatal]
  - Cerebral infarction [Unknown]
